FAERS Safety Report 16590348 (Version 1)
Quarter: 2019Q3

REPORT INFORMATION
  Report Type: Spontaneous
  Country: US (occurrence: US)
  Receive Date: 20190604
  Receipt Date: 20190604
  Transmission Date: 20191004
  Serious: No
  Sender: FDA-Public Use
  Company Number: None

PATIENT
  Age: 50 Year
  Sex: Female

DRUGS (1)
  1. REPATHA [Suspect]
     Active Substance: EVOLOCUMAB
     Dosage: ?          OTHER
     Route: 058
     Dates: start: 20181227

REACTIONS (4)
  - Food craving [None]
  - Abdominal pain upper [None]
  - Therapeutic response unexpected [None]
  - Weight increased [None]

NARRATIVE: CASE EVENT DATE: 20190604
